FAERS Safety Report 22117183 (Version 6)
Quarter: 2023Q2

REPORT INFORMATION
  Report Type: Report from Study
  Country: SK (occurrence: SK)
  Receive Date: 20230320
  Receipt Date: 20230424
  Transmission Date: 20230721
  Serious: Yes (Other)
  Sender: FDA-Public Use
  Company Number: SK-002147023-NVSC2023SK060235

PATIENT
  Age: 25 Year
  Sex: Male
  Weight: 90.7 kg

DRUGS (4)
  1. KESIMPTA [Suspect]
     Active Substance: OFATUMUMAB
     Indication: Relapsing multiple sclerosis
     Dosage: 20 MG, Q4W
     Route: 058
     Dates: start: 20220824, end: 20230308
  2. DAOSIN [Concomitant]
     Indication: Histamine intolerance
     Dosage: UNK
     Route: 065
     Dates: start: 2015
  3. CROMOLYN SODIUM [Concomitant]
     Active Substance: CROMOLYN SODIUM
     Indication: Histamine intolerance
     Dosage: UNK
     Route: 065
     Dates: start: 2015
  4. LEVOCETIRIZINE [Concomitant]
     Active Substance: LEVOCETIRIZINE
     Indication: Histamine intolerance
     Dosage: UNK
     Route: 065
     Dates: start: 2015

REACTIONS (1)
  - Magnetic resonance imaging abnormal [Recovered/Resolved]

NARRATIVE: CASE EVENT DATE: 20230308
